FAERS Safety Report 8395972-7 (Version None)
Quarter: 2012Q2

REPORT INFORMATION
  Report Type: 
  Country: None (occurrence: None)
  Receive Date: 20120530
  Receipt Date: 20120525
  Transmission Date: 20120825
  Serious: Yes (Other)
  Sender: FDA-Public Use
  Company Number: GB-PFIZER INC-2011243673

PATIENT
  Age: 38 Year
  Sex: Male
  Weight: 79.37 kg

DRUGS (1)
  1. VARENICLINE TARTRATE [Suspect]
     Indication: SMOKING CESSATION THERAPY
     Dosage: UNK UG, UNK
     Route: 048
     Dates: start: 20101101, end: 20110101

REACTIONS (3)
  - DRUG WITHDRAWAL SYNDROME [None]
  - ROAD TRAFFIC ACCIDENT [None]
  - GRAND MAL CONVULSION [None]
